FAERS Safety Report 21026147 (Version 2)
Quarter: 2022Q3

REPORT INFORMATION
  Report Type: Report from Study
  Country: US (occurrence: US)
  Receive Date: 20220630
  Receipt Date: 20220715
  Transmission Date: 20221027
  Serious: No
  Sender: FDA-Public Use
  Company Number: US-BIOVITRUM-2022US07906

PATIENT
  Sex: Female

DRUGS (23)
  1. KINERET [Suspect]
     Active Substance: ANAKINRA
     Indication: Product used for unknown indication
     Dates: start: 20220614, end: 20220627
  2. FLUOXETINE [Concomitant]
     Active Substance: FLUOXETINE HYDROCHLORIDE
  3. RIZATRIPTAN [Concomitant]
     Active Substance: RIZATRIPTAN
  4. DIFLUCAN [Concomitant]
     Active Substance: FLUCONAZOLE
  5. LEVOCETIRIZINE [Concomitant]
     Active Substance: LEVOCETIRIZINE
  6. HYDROCORTISONE [Concomitant]
     Active Substance: HYDROCORTISONE
  7. MONTELUKAST [Concomitant]
     Active Substance: MONTELUKAST SODIUM
  8. AZELASTINE [Concomitant]
     Active Substance: AZELASTINE
  9. ESOMEPRAZOLE [Concomitant]
     Active Substance: ESOMEPRAZOLE
  10. LASIX [Concomitant]
     Active Substance: FUROSEMIDE
  11. VITAMINS [Concomitant]
     Active Substance: VITAMINS
  12. FIORICET [Concomitant]
     Active Substance: ACETAMINOPHEN\BUTALBITAL\CAFFEINE
  13. VICODIN [Concomitant]
     Active Substance: ACETAMINOPHEN\HYDROCODONE BITARTRATE
  14. METFORMIN [Concomitant]
     Active Substance: METFORMIN HYDROCHLORIDE
  15. BACLOFEN [Concomitant]
     Active Substance: BACLOFEN
  16. CHOLESTYRAMINE [Concomitant]
     Active Substance: CHOLESTYRAMINE
  17. LOMOTIL [Concomitant]
     Active Substance: ATROPINE SULFATE\DIPHENOXYLATE HYDROCHLORIDE
  18. PROMETHAZINE [Concomitant]
     Active Substance: PROMETHAZINE HYDROCHLORIDE
  19. CREON [Concomitant]
     Active Substance: PANCRELIPASE AMYLASE\PANCRELIPASE LIPASE\PANCRELIPASE PROTEASE
  20. CLONAZEPAM [Concomitant]
     Active Substance: CLONAZEPAM
  21. ZOFRAN [Concomitant]
     Active Substance: ONDANSETRON HYDROCHLORIDE
  22. DICYCLOMINE [Concomitant]
     Active Substance: DICYCLOMINE HYDROCHLORIDE
  23. CEFDINIR [Concomitant]
     Active Substance: CEFDINIR

REACTIONS (20)
  - Fatigue [Unknown]
  - Influenza like illness [Unknown]
  - Throat irritation [Unknown]
  - Cough [Unknown]
  - Pain in extremity [Unknown]
  - Swelling [Unknown]
  - Head discomfort [Unknown]
  - Joint swelling [Unknown]
  - Skin warm [Unknown]
  - Peripheral swelling [Unknown]
  - Condition aggravated [Unknown]
  - Injection site pain [Not Recovered/Not Resolved]
  - Injection site urticaria [Unknown]
  - Injection site discolouration [Unknown]
  - Injection site bruising [Unknown]
  - Urticaria [Unknown]
  - Pruritus [Unknown]
  - Hypersensitivity [Unknown]
  - Injection site swelling [Unknown]
  - Rash pruritic [Unknown]
